FAERS Safety Report 4594909-6 (Version None)
Quarter: 2005Q1

REPORT INFORMATION
  Report Type: 
  Country: None (occurrence: None)
  Receive Date: 20050224
  Receipt Date: 20040322
  Transmission Date: 20050727
  Serious: Yes (Hospitalization, Other)
  Sender: FDA-Public Use
  Company Number: GXKR2004GB00746

PATIENT
  Age: 32 Year
  Sex: Female

DRUGS (2)
  1. TRIMETHOPRIM [Suspect]
     Indication: LOWER RESPIRATORY TRACT INFECTION
     Dosage: 200 MG, BID, ORAL
     Route: 048
     Dates: start: 20040217, end: 20040218
  2. CARBAMAZEPINE [Concomitant]

REACTIONS (5)
  - ANGIONEUROTIC OEDEMA [None]
  - CHEST DISCOMFORT [None]
  - DYSPNOEA [None]
  - SWELLING FACE [None]
  - SWOLLEN TONGUE [None]
